FAERS Safety Report 6785239-2 (Version None)
Quarter: 2010Q2

REPORT INFORMATION
  Report Type: 
  Country: None (occurrence: None)
  Receive Date: 20100622
  Receipt Date: 20100622
  Transmission Date: 20101027
  Serious: Yes (Life-Threatening)
  Sender: FDA-Public Use
  Company Number: None

PATIENT
  Sex: Female
  Weight: 58.0604 kg

DRUGS (2)
  1. ISONIAZID [Suspect]
     Indication: EXPOSURE TO COMMUNICABLE DISEASE
     Dosage: 300 MG DAILY PO
     Route: 048
     Dates: start: 20100501, end: 20100613
  2. ISONIAZID [Suspect]
     Indication: TUBERCULIN TEST POSITIVE
     Dosage: 300 MG DAILY PO
     Route: 048
     Dates: start: 20100501, end: 20100613

REACTIONS (3)
  - OCULAR ICTERUS [None]
  - VOMITING [None]
  - YELLOW SKIN [None]
